FAERS Safety Report 5121513-3 (Version None)
Quarter: 2006Q4

REPORT INFORMATION
  Report Type: 
  Country: None (occurrence: None)
  Receive Date: 20061006
  Receipt Date: 20060928
  Transmission Date: 20070319
  Serious: Yes (Hospitalization, Other)
  Sender: FDA-Public Use
  Company Number: DE-BRISTOL-MYERS SQUIBB COMPANY-13524939

PATIENT
  Age: 71 Year
  Sex: Female
  Weight: 72 kg

DRUGS (4)
  1. TAXOL [Suspect]
     Indication: OVARIAN CANCER
     Dates: start: 20060921, end: 20060921
  2. FORTECORTIN [Concomitant]
     Dates: start: 20060920, end: 20060920
  3. RANITIDINE [Concomitant]
     Dates: start: 20060920, end: 20060920
  4. TAVEGIL [Concomitant]
     Dates: start: 20060920, end: 20060920

REACTIONS (4)
  - BACK PAIN [None]
  - FEELING HOT [None]
  - FLUSHING [None]
  - HYPOTENSION [None]
